FAERS Safety Report 16960920 (Version 4)
Quarter: 2020Q1

REPORT INFORMATION
  Report Type: Spontaneous
  Country: US (occurrence: US)
  Receive Date: 20191025
  Receipt Date: 20200122
  Transmission Date: 20200409
  Serious: Yes (Hospitalization)
  Sender: FDA-Public Use
  Company Number: US-PFIZER INC-2016542277

PATIENT
  Age: 81 Year
  Sex: Female
  Weight: 97.52 kg

DRUGS (29)
  1. BIOTIN [Concomitant]
     Active Substance: BIOTIN
     Dosage: 1000 UG, 1X/DAY (EVERY MORNING)
     Route: 048
  2. ELIDEL [Concomitant]
     Active Substance: PIMECROLIMUS
     Indication: SKIN IRRITATION
     Dosage: UNK, AS NEEDED (TWICE A DAY)
     Route: 061
  3. JANUMET [Concomitant]
     Active Substance: METFORMIN HYDROCHLORIDE\SITAGLIPTIN PHOSPHATE
     Indication: DIABETES MELLITUS
     Dosage: UNK, 2X/DAY (50MG/1000MG)
     Route: 048
  4. MAGNESIUM OXIDE. [Concomitant]
     Active Substance: MAGNESIUM OXIDE
     Dosage: 400 MG, 2X/DAY (TAKE WITH DINNER AND AT BEDTIME)
     Route: 048
  5. PROBIOTIC [BIFIDOBACTERIUM LACTIS] [Concomitant]
     Active Substance: BIFIDOBACTERIUM ANIMALIS LACTIS
     Dosage: 1 DF, DAILY
     Route: 048
  6. HYPROMELLOSE [Concomitant]
     Active Substance: HYPROMELLOSES
     Dosage: 1 GTT, 4X/DAY (1 DROP EACH EYE)
  7. CRANBERRY EXTRACT [VACCINIUM MACROCARPON] [Concomitant]
     Indication: SUPPLEMENTATION THERAPY
     Dosage: 0.5 MG, 2X/DAY
     Route: 048
  8. LASIX [Concomitant]
     Active Substance: FUROSEMIDE
     Indication: CARDIAC DISORDER
  9. ASPIRIN (E.C.) [Concomitant]
     Active Substance: ASPIRIN
     Dosage: 325 MG, 1X/DAY (BEDTIME)
     Route: 048
  10. LISINOPRIL. [Concomitant]
     Active Substance: LISINOPRIL
     Dosage: 5 MG, DAILY
     Route: 048
  11. SANDOSTATIN [Concomitant]
     Active Substance: OCTREOTIDE ACETATE
     Dosage: 30 MG, UNK (VIAL)
  12. VITAMIN D3 [Concomitant]
     Active Substance: CHOLECALCIFEROL
     Indication: SUPPLEMENTATION THERAPY
     Dosage: 2000 IU, DAILY
     Route: 048
  13. ATIVAN [Concomitant]
     Active Substance: LORAZEPAM
     Indication: SLEEP DISORDER
     Dosage: 2 MG, 1X/DAY (BEDTIME)
     Route: 048
  14. FLAVONATE [Concomitant]
     Dosage: 100 MG, 3X/DAY
     Route: 048
  15. KLONOPIN [Concomitant]
     Active Substance: CLONAZEPAM
     Indication: SLEEP DISORDER
     Dosage: 2 MG, 1X/DAY (BEDTIME)
     Route: 048
  16. OMEPRAZOLE. [Concomitant]
     Active Substance: OMEPRAZOLE
     Dosage: 20 MG, 2X/DAY (BEFORE MEALS)
     Route: 048
  17. POTASSIUM GLUCONATE [Concomitant]
     Active Substance: POTASSIUM GLUCONATE
     Indication: SUPPLEMENTATION THERAPY
     Dosage: 99 MG, 1X/DAY (BEDTIME)
     Route: 048
  18. CELEBREX [Suspect]
     Active Substance: CELECOXIB
     Indication: PAIN
     Dosage: 200 MG, 1X/DAY (AT NIGHT)
     Route: 048
  19. PREMARIN [Concomitant]
     Active Substance: ESTROGENS, CONJUGATED
     Dosage: UNK, WEEKLY (APPLY 1GM 3 TIMES WEEKLY AT BEDTIME)
     Route: 067
  20. NOVOLIN N [Concomitant]
     Active Substance: INSULIN HUMAN
     Dosage: UNK, AS NEEDED (TWICE A DAY)
     Route: 058
  21. REQUIP [Concomitant]
     Active Substance: ROPINIROLE HYDROCHLORIDE
     Indication: RESTLESS LEGS SYNDROME
     Dosage: 3 MG, 4X/DAY
     Route: 048
  22. TYLENOL [Concomitant]
     Active Substance: ACETAMINOPHEN
     Dosage: 325 MG, EVERY 4 HRS
     Route: 048
  23. TOUJEO [Concomitant]
     Active Substance: INSULIN GLARGINE
     Indication: DIABETES MELLITUS
     Dosage: UNK, DAILY (300 UNIT/L  ML I INSULIN, PEN 30 UNIT )
     Route: 058
  24. NOVOLOG [Concomitant]
     Active Substance: INSULIN ASPART
     Indication: BLOOD GLUCOSE INCREASED
     Dosage: UNK (100 UNIT/ ML INSULIN PEN)
     Route: 058
  25. CALCIUM [Concomitant]
     Active Substance: CALCIUM
     Indication: SUPPLEMENTATION THERAPY
     Dosage: 600 MG, DAILY
     Route: 048
  26. CALAN [Concomitant]
     Active Substance: VERAPAMIL HYDROCHLORIDE
     Dosage: 120 MG, 1X/DAY (BEDTIME)
     Route: 048
  27. LASIX [Concomitant]
     Active Substance: FUROSEMIDE
     Indication: FLUID REPLACEMENT
     Dosage: 20 MG, DAILY
     Route: 048
  28. LOMOTIL [Concomitant]
     Active Substance: ATROPINE SULFATE\DIPHENOXYLATE HYDROCHLORIDE
     Indication: DIARRHOEA
     Dosage: UNK, AS NEEDED (THREE TIMES A DAY)
     Route: 048
  29. TRAMADOL. [Concomitant]
     Active Substance: TRAMADOL
     Indication: PAIN
     Dosage: UNK, AS NEEDED (50-100 MG, EVERY 6 HOURS)
     Route: 048

REACTIONS (5)
  - Device battery issue [Not Recovered/Not Resolved]
  - Back pain [Not Recovered/Not Resolved]
  - Complication associated with device [Not Recovered/Not Resolved]
  - Bladder irritation [Not Recovered/Not Resolved]
  - Spondylitis [Not Recovered/Not Resolved]
